FAERS Safety Report 11193590 (Version 1)
Quarter: 2015Q2

REPORT INFORMATION
  Report Type: Spontaneous
  Country: US (occurrence: US)
  Receive Date: 20150616
  Receipt Date: 20150616
  Transmission Date: 20150821
  Serious: No
  Sender: FDA-Public Use
  Company Number: US-TEVA-570913ACC

PATIENT
  Age: 32 Year
  Sex: Female
  Weight: 80.81 kg

DRUGS (2)
  1. PLAN B ONE-STEP [Suspect]
     Active Substance: LEVONORGESTREL
     Indication: POST COITAL CONTRACEPTION
     Route: 048
     Dates: start: 20150525, end: 20150525
  2. GENERIC OF TRI-SPRINTEC [Concomitant]
     Indication: CONTRACEPTION
     Dates: start: 20150425, end: 20150523

REACTIONS (2)
  - Metrorrhagia [Recovered/Resolved]
  - Menstruation irregular [Recovered/Resolved]

NARRATIVE: CASE EVENT DATE: 20150526
